FAERS Safety Report 20468333 (Version 1)
Quarter: 2022Q1

REPORT INFORMATION
  Report Type: Spontaneous
  Country: US (occurrence: None)
  Receive Date: 20220212
  Receipt Date: 20220212
  Transmission Date: 20220424
  Serious: Yes (Life-Threatening)
  Sender: FDA-Public Use
  Company Number: None

PATIENT
  Age: 48 Year
  Sex: Female
  Weight: 110.25 kg

DRUGS (1)
  1. TOCILIZUMAB [Suspect]
     Active Substance: TOCILIZUMAB
     Indication: COVID-19 pneumonia
     Dosage: FREQUENCY : ONCE;?
     Route: 040
     Dates: start: 20211229, end: 20211229

REACTIONS (2)
  - Pneumonia staphylococcal [None]
  - Staphylococcal bacteraemia [None]

NARRATIVE: CASE EVENT DATE: 20220104
